FAERS Safety Report 5554087-3 (Version None)
Quarter: 2007Q4

REPORT INFORMATION
  Report Type: 
  Country: None (occurrence: None)
  Receive Date: 20071213
  Receipt Date: 20070719
  Transmission Date: 20080405
  Serious: No
  Sender: FDA-Public Use
  Company Number: US-AMGEN-KDL211317

PATIENT
  Sex: Female

DRUGS (2)
  1. ENBREL [Suspect]
     Indication: PSORIATIC ARTHROPATHY
     Route: 058
     Dates: start: 20061130
  2. ENBREL [Suspect]
     Indication: PSORIASIS

REACTIONS (5)
  - BLISTER [None]
  - MUSCULOSKELETAL STIFFNESS [None]
  - RASH ERYTHEMATOUS [None]
  - RASH PRURITIC [None]
  - URTICARIA [None]
